FAERS Safety Report 14329924 (Version 1)
Quarter: 2017Q4

REPORT INFORMATION
  Report Type: Spontaneous
  Country: CN (occurrence: CN)
  Receive Date: 20171227
  Receipt Date: 20171227
  Transmission Date: 20180321
  Serious: Yes (Other)
  Sender: FDA-Public Use
  Company Number: CN-PFIZER INC-2017545080

PATIENT
  Sex: Male

DRUGS (1)
  1. VIAGRA [Suspect]
     Active Substance: SILDENAFIL CITRATE
     Dosage: UNK

REACTIONS (6)
  - Heart rate increased [Unknown]
  - Laryngeal pain [Unknown]
  - Dizziness [Unknown]
  - Laryngeal oedema [Unknown]
  - Headache [Unknown]
  - Drug ineffective [Unknown]
